FAERS Safety Report 14431123 (Version 1)
Quarter: 2018Q1

REPORT INFORMATION
  Report Type: Spontaneous
  Country: US (occurrence: US)
  Receive Date: 20180124
  Receipt Date: 20180124
  Transmission Date: 20180509
  Serious: No
  Sender: FDA-Public Use
  Company Number: US-ASTRAZENECA-2018SE08597

PATIENT
  Age: 17146 Day
  Sex: Female
  Weight: 93 kg

DRUGS (4)
  1. LISINOPRIL. [Suspect]
     Active Substance: LISINOPRIL
     Indication: HYPERTENSION
     Route: 048
  2. FARXIGA [Suspect]
     Active Substance: DAPAGLIFLOZIN PROPANEDIOL
     Indication: TYPE 2 DIABETES MELLITUS
     Dosage: 5 MG EVERY DAY FOR 1 WEEK
     Route: 048
     Dates: start: 201711, end: 201711
  3. FARXIGA [Suspect]
     Active Substance: DAPAGLIFLOZIN PROPANEDIOL
     Indication: TYPE 2 DIABETES MELLITUS
     Route: 048
     Dates: start: 201711
  4. LEVOTHYROXINE. [Concomitant]
     Active Substance: LEVOTHYROXINE
     Indication: THYROID DISORDER
     Route: 048

REACTIONS (16)
  - Fungal infection [Not Recovered/Not Resolved]
  - Thirst [Unknown]
  - Stress urinary incontinence [Unknown]
  - Mobility decreased [Unknown]
  - Drug dose omission [Recovered/Resolved]
  - Nausea [Recovered/Resolved]
  - Renal disorder [Unknown]
  - Feeling abnormal [Unknown]
  - Kidney infection [Unknown]
  - Cough [Not Recovered/Not Resolved]
  - White blood cell count increased [Unknown]
  - Renal pain [Unknown]
  - Blood glucose increased [Unknown]
  - Urinary incontinence [Not Recovered/Not Resolved]
  - Urinary tract infection [Unknown]
  - Bronchitis [Not Recovered/Not Resolved]

NARRATIVE: CASE EVENT DATE: 20171215
